FAERS Safety Report 14149360 (Version 2)
Quarter: 2018Q1

REPORT INFORMATION
  Report Type: Spontaneous
  Country: US (occurrence: US)
  Receive Date: 20171101
  Receipt Date: 20180102
  Transmission Date: 20180508
  Serious: Yes (Hospitalization, Other)
  Sender: FDA-Public Use
  Company Number: PHEH2017US034485

PATIENT
  Age: 74 Year
  Sex: Male
  Weight: 86.6 kg

DRUGS (11)
  1. METOCLOPRAMIDE. [Concomitant]
     Active Substance: METOCLOPRAMIDE
     Indication: NAUSEA
     Dosage: UNK UNK, QD
     Route: 048
     Dates: start: 20170921
  2. DENOSUMAB [Concomitant]
     Active Substance: DENOSUMAB
     Indication: BLOOD CHOLESTEROL ABNORMAL
     Dosage: (Q6MN)
     Route: 058
     Dates: start: 20170105
  3. LOMOTIL [Concomitant]
     Active Substance: ATROPINE SULFATE\DIPHENOXYLATE HYDROCHLORIDE
     Indication: DIARRHOEA
     Dosage: UNK UNK, PRN  (Q4)
     Route: 048
     Dates: start: 20170921
  4. ENTRESTO [Suspect]
     Active Substance: SACUBITRIL\VALSARTAN
     Dosage: UNK
     Route: 065
     Dates: start: 20171110
  5. METOLAZONE. [Concomitant]
     Active Substance: METOLAZONE
     Indication: CARDIAC FAILURE CONGESTIVE
     Dosage: UNK UNK, PRN
     Route: 048
     Dates: start: 20170301
  6. POTASSIUM CHLORIDE. [Concomitant]
     Active Substance: POTASSIUM CHLORIDE
     Indication: PRODUCT USED FOR UNKNOWN INDICATION
     Dosage: UNK UNK, BID
     Route: 048
     Dates: start: 20170915
  7. ENTRESTO [Suspect]
     Active Substance: SACUBITRIL\VALSARTAN
     Indication: PRODUCT USED FOR UNKNOWN INDICATION
     Dosage: UNK
     Route: 065
     Dates: end: 20170910
  8. MIDODRINE [Concomitant]
     Active Substance: MIDODRINE
     Indication: HYPOTENSION
     Dosage: UNK UNK, BID
     Route: 048
     Dates: start: 20160629
  9. ENTRESTO [Suspect]
     Active Substance: SACUBITRIL\VALSARTAN
     Dosage: UNK
     Route: 065
     Dates: start: 20170915
  10. SAVAYSA [Concomitant]
     Active Substance: EDOXABAN TOSYLATE
     Indication: ATRIAL FLUTTER
     Dosage: UNK UNK, QD
     Route: 048
     Dates: start: 20170720
  11. SPIRONOLACTONE. [Concomitant]
     Active Substance: SPIRONOLACTONE
     Indication: CARDIAC FAILURE CONGESTIVE
     Dosage: UNK UNK, QD
     Route: 048
     Dates: start: 20170916

REACTIONS (9)
  - Dyspnoea [Recovering/Resolving]
  - Weight increased [Unknown]
  - Ascites [Unknown]
  - Vomiting [Unknown]
  - Hypotension [Recovered/Resolved]
  - Cardiac failure congestive [Recovered/Resolved]
  - Nausea [Unknown]
  - Orthopnoea [Unknown]
  - Renal failure [Not Recovered/Not Resolved]

NARRATIVE: CASE EVENT DATE: 20170827
